FAERS Safety Report 6491953-9 (Version None)
Quarter: 2009Q4

REPORT INFORMATION
  Report Type: 
  Country: None (occurrence: None)
  Receive Date: 20091208
  Receipt Date: 20091125
  Transmission Date: 20100525
  Serious: Yes (Other)
  Sender: FDA-Public Use
  Company Number: 8043724

PATIENT
  Sex: Male
  Weight: 84 kg

DRUGS (5)
  1. KEPPRA [Suspect]
     Dosage: (ORAL)
     Route: 048
     Dates: start: 20090223, end: 20090223
  2. ASS (ASS) (NOT SPECIFIED) [Suspect]
     Dosage: (ORAL)
     Route: 048
     Dates: start: 20090223, end: 20090223
  3. CARBAMAZEPINE [Suspect]
     Dosage: (ORAL)
     Route: 048
     Dates: start: 20090223, end: 20090223
  4. LAMOTRIGINE [Suspect]
     Dosage: (10-20 TABS ORAL)
     Route: 048
     Dates: start: 20090223, end: 20090223
  5. MIRTAZAPINE [Suspect]
     Dosage: (ORAL)
     Route: 048

REACTIONS (4)
  - DISTURBANCE IN ATTENTION [None]
  - MULTIPLE DRUG OVERDOSE INTENTIONAL [None]
  - SUICIDE ATTEMPT [None]
  - SYSTOLIC HYPERTENSION [None]
